FAERS Safety Report 4798374-5 (Version None)
Quarter: 2005Q4

REPORT INFORMATION
  Report Type: 
  Country: None (occurrence: None)
  Receive Date: 20051011
  Receipt Date: 20050926
  Transmission Date: 20060501
  Serious: Yes (Death)
  Sender: FDA-Public Use
  Company Number: P200500022

PATIENT
  Age: 84 Year
  Sex: Male
  Weight: 67.1 kg

DRUGS (10)
  1. PLENAXIS [Suspect]
     Indication: PROSTATE CANCER
     Dosage: 100 MG, SINGLE, INTRAMUSCULAR
     Route: 030
     Dates: start: 20050601, end: 20050601
  2. PLENAXIS [Suspect]
     Indication: PROSTATE CANCER
     Dosage: 100 MG, SINGLE, INTRAMUSCULAR
     Route: 030
     Dates: start: 20050613, end: 20050613
  3. ACETAMINOPHEN [Concomitant]
  4. MILK OF MAGNESIA TAB [Concomitant]
  5. ARICEPT [Concomitant]
  6. ASPIRIN [Concomitant]
  7. CASODEX [Concomitant]
  8. DITROPAN [Concomitant]
  9. PROSCAR [Concomitant]
  10. SYNTHROID [Concomitant]

REACTIONS (1)
  - DISEASE PROGRESSION [None]
